FAERS Safety Report 9277955 (Version 2)
Quarter: 2013Q2

REPORT INFORMATION
  Report Type: Report from Study
  Country: MX (occurrence: MX)
  Receive Date: 20130508
  Receipt Date: 20130620
  Transmission Date: 20140414
  Serious: Yes (Other)
  Sender: FDA-Public Use
  Company Number: PHHY2013MX045022

PATIENT
  Age: 93 Year
  Sex: Female

DRUGS (5)
  1. ACLASTA [Suspect]
     Indication: OSTEOPOROSIS
     Dosage: 5 MG/100ML, ANNUALLY
     Route: 042
     Dates: start: 2010
  2. ACLASTA [Suspect]
     Dosage: 5 MG/100ML, ANNUALLY
     Route: 042
  3. ACLASTA [Suspect]
     Dosage: 5 MG/100ML, ANNUALLY
     Route: 042
  4. CELECOXIB [Concomitant]
     Indication: PAIN
     Dosage: 1 UKN, Q72H
  5. PREGABALIN [Concomitant]
     Indication: PAIN
     Dosage: 1 UKN, Q72H

REACTIONS (1)
  - Deafness [Recovering/Resolving]
